FAERS Safety Report 4665917-1 (Version None)
Quarter: 2005Q2

REPORT INFORMATION
  Report Type: 
  Country: None (occurrence: None)
  Receive Date: 20050517
  Receipt Date: 20050224
  Transmission Date: 20051028
  Serious: No
  Sender: FDA-Public Use
  Company Number: S05-USA-00975-01

PATIENT
  Age: 81 Year
  Sex: Female

DRUGS (8)
  1. NAMENDA [Suspect]
     Indication: DEMENTIA ALZHEIMER'S TYPE
     Dosage: 10 MG BID PO
     Route: 048
     Dates: start: 20050126, end: 20050209
  2. NAMENDA [Suspect]
     Indication: DEMENTIA ALZHEIMER'S TYPE
     Dosage: 5 MG QD PO
     Route: 048
     Dates: start: 20050105, end: 20050111
  3. NAMENDA [Suspect]
     Indication: DEMENTIA ALZHEIMER'S TYPE
     Dosage: 5 MG BID PO
     Route: 048
     Dates: start: 20050112, end: 20050118
  4. NAMENDA [Suspect]
     Indication: DEMENTIA ALZHEIMER'S TYPE
     Dosage: 15 MG QD PO
     Route: 048
     Dates: start: 20050119, end: 20050125
  5. ARICEPT [Suspect]
     Indication: DEMENTIA ALZHEIMER'S TYPE
     Dates: start: 20050126, end: 20050216
  6. CAPTOPRIL [Concomitant]
  7. LANOXIN [Concomitant]
  8. NEXIUM [Concomitant]

REACTIONS (3)
  - AFFECT LABILITY [None]
  - DIZZINESS [None]
  - HALLUCINATION, VISUAL [None]
